FAERS Safety Report 9984077 (Version 1)
Quarter: 2014Q1

REPORT INFORMATION
  Report Type: Report from Study
  Country: US (occurrence: US)
  Receive Date: 20140307
  Receipt Date: 20140307
  Transmission Date: 20141002
  Serious: No
  Sender: FDA-Public Use
  Company Number: US-ABBVIE-13P-163-1184241-00

PATIENT
  Age: 40 Year
  Sex: Female

DRUGS (4)
  1. HUMIRA [Suspect]
     Indication: PSORIATIC ARTHROPATHY
     Dates: start: 201204
  2. LEVOTHYROXINE [Concomitant]
     Indication: HYPOTHYROIDISM
  3. CITALOPRAM [Concomitant]
     Indication: ANXIETY
  4. CITALOPRAM [Concomitant]
     Indication: DEPRESSION

REACTIONS (1)
  - Inappropriate schedule of drug administration [Recovered/Resolved]
